FAERS Safety Report 5802026-X (Version None)
Quarter: 2008Q3

REPORT INFORMATION
  Report Type: 
  Country: None (occurrence: None)
  Receive Date: 20080702
  Receipt Date: 20080626
  Transmission Date: 20090109
  Serious: Yes (Other)
  Sender: FDA-Public Use
  Company Number: GXKR2008DE05856

PATIENT
  Sex: Female

DRUGS (3)
  1. METFORMIN HEXAL (NGX) (METFORMIN) FILM-COATED TABLET [Suspect]
     Dosage: ORAL
     Route: 048
  2. MARCUMAR [Suspect]
     Dosage: ORAL
     Route: 048
  3. INSULIN (INSULIN) [Concomitant]

REACTIONS (3)
  - DRUG EFFECT DECREASED [None]
  - PERIPHERAL VASCULAR DISORDER [None]
  - SKIN ULCER [None]
